FAERS Safety Report 18962918 (Version 1)
Quarter: 2021Q1

REPORT INFORMATION
  Report Type: Spontaneous
  Country: US (occurrence: US)
  Receive Date: 20210303
  Receipt Date: 20210303
  Transmission Date: 20210420
  Serious: Yes (Death)
  Sender: FDA-Public Use
  Company Number: US-BAYER-2021-089557

PATIENT
  Sex: Male

DRUGS (1)
  1. ALKA?SELTZER ORIGINAL [Suspect]
     Active Substance: ANHYDROUS CITRIC ACID\ASPIRIN\SODIUM BICARBONATE
     Dosage: UNK

REACTIONS (1)
  - Death [Fatal]
